FAERS Safety Report 6550548-9 (Version None)
Quarter: 2010Q1

REPORT INFORMATION
  Report Type: 
  Country: None (occurrence: None)
  Receive Date: 20100121
  Receipt Date: 20100111
  Transmission Date: 20100710
  Serious: Yes (Death)
  Sender: FDA-Public Use
  Company Number: 004743

PATIENT
  Age: 48 Year
  Sex: Female

DRUGS (4)
  1. ALPRAZOLAM [Suspect]
  2. COCAINE [Suspect]
  3. HYDROCODONE [Suspect]
  4. CARISOPRODOL [Suspect]

REACTIONS (1)
  - DRUG ABUSE [None]
